FAERS Safety Report 9962009 (Version 1)
Quarter: 2014Q1

REPORT INFORMATION
  Report Type: Spontaneous
  Country: US (occurrence: None)
  Receive Date: 20140127
  Receipt Date: 20140127
  Transmission Date: 20141002
  Serious: Yes (Other)
  Sender: FDA-Public Use
  Company Number: 1196955

PATIENT
  Age: 67 Year
  Sex: Male

DRUGS (1)
  1. ACTIVASE [Suspect]
     Indication: OFF LABEL USE
     Dosage: BELIVE DOSE OF 10 MG, INTRAVENOUS DRIP
     Route: 041

REACTIONS (1)
  - Haemorrhage intracranial [None]
